FAERS Safety Report 9228415 (Version 2)
Quarter: 2013Q2

REPORT INFORMATION
  Report Type: Report from Study
  Country: US (occurrence: US)
  Receive Date: 20130412
  Receipt Date: 20130507
  Transmission Date: 20140414
  Serious: Yes (Hospitalization)
  Sender: FDA-Public Use
  Company Number: US-GLAXOSMITHKLINE-A1019645A

PATIENT
  Age: 60 Year
  Sex: Male
  Weight: 82 kg

DRUGS (6)
  1. LAPATINIB [Suspect]
     Indication: OESOPHAGEAL CARCINOMA
     Dosage: 1000MG PER DAY
     Route: 048
     Dates: start: 20130326
  2. CARBOPLATIN [Suspect]
     Indication: OESOPHAGEAL NEOPLASM
     Dosage: 762MG CYCLIC
     Route: 042
     Dates: start: 20130326
  3. PACLITAXEL [Suspect]
     Indication: OESOPHAGEAL NEOPLASM
     Dosage: 350MG CYCLIC
     Route: 042
     Dates: start: 20130326
  4. VICODIN [Concomitant]
     Route: 048
  5. METOPROLOL [Concomitant]
     Dosage: 12.5MG PER DAY
     Route: 048
  6. COMPAZINE [Concomitant]
     Dosage: 10MG AS REQUIRED
     Route: 048

REACTIONS (1)
  - Febrile neutropenia [Recovered/Resolved]
